FAERS Safety Report 4481272-4 (Version None)
Quarter: 2004Q4

REPORT INFORMATION
  Report Type: 
  Country: None (occurrence: None)
  Receive Date: 20040923
  Receipt Date: 20040628
  Transmission Date: 20050328
  Serious: No
  Sender: FDA-Public Use
  Company Number: USA030535995

PATIENT
  Age: 57 Year
  Sex: Female
  Weight: 52 kg

DRUGS (3)
  1. FORTEO [Suspect]
     Indication: OSTEOPOROSIS
  2. ACTONEL [Concomitant]
  3. CALCIUM AND VITAMIN D [Concomitant]

REACTIONS (4)
  - CONSTIPATION [None]
  - INJECTION SITE ERYTHEMA [None]
  - INJECTION SITE HAEMORRHAGE [None]
  - INJECTION SITE PAIN [None]
